FAERS Safety Report 22181952 (Version 3)
Quarter: 2025Q2

REPORT INFORMATION
  Report Type: Spontaneous
  Country: US (occurrence: US)
  Receive Date: 20230406
  Receipt Date: 20250404
  Transmission Date: 20250716
  Serious: Yes (Other)
  Sender: PFIZER
  Company Number: US-PFIZER INC-PV202300063307

PATIENT
  Age: 74 Year
  Sex: Male

DRUGS (1)
  1. CIBINQO [Suspect]
     Active Substance: ABROCITINIB
     Dosage: 100 MG ONCE DAILY
     Route: 048

REACTIONS (2)
  - Hepatic cirrhosis [Unknown]
  - Pain [Unknown]

NARRATIVE: CASE EVENT DATE: 20250101
